FAERS Safety Report 8577267-1 (Version None)
Quarter: 2012Q3

REPORT INFORMATION
  Report Type: 
  Country: None (occurrence: None)
  Receive Date: 20120807
  Receipt Date: 20120522
  Transmission Date: 20120928
  Serious: No
  Sender: FDA-Public Use
  Company Number: US-COVIDIEN/TYCO HEALTHCARE/MALLINCKRODT-T201201901

PATIENT
  Sex: Female
  Weight: 52.154 kg

DRUGS (10)
  1. PHENOBARBITAL TAB [Concomitant]
  2. HYDROCODONE BITARTRATE + ACETAMINOPHEN [Concomitant]
  3. PHENYTOIN [Concomitant]
  4. CYMBALTA [Concomitant]
  5. PENNSAID [Suspect]
     Dosage: 30 GTT, TID
     Dates: start: 20120511, end: 20120516
  6. ATORVASTATIN [Concomitant]
  7. MELOXICAM [Concomitant]
  8. TOPIRAMATE [Concomitant]
  9. FIORICET [Concomitant]
  10. PENNSAID [Suspect]
     Indication: ARTHRALGIA
     Dosage: 30 GTT, QID
     Dates: start: 20120507, end: 20120510

REACTIONS (1)
  - TONGUE DISCOLOURATION [None]
